FAERS Safety Report 6058539-1 (Version None)
Quarter: 2009Q1

REPORT INFORMATION
  Report Type: 
  Country: None (occurrence: None)
  Receive Date: 20090130
  Receipt Date: 20081230
  Transmission Date: 20090719
  Serious: No
  Sender: FDA-Public Use
  Company Number: US-BAYER-200837204NA

PATIENT
  Age: 26 Year
  Sex: Female
  Weight: 57 kg

DRUGS (1)
  1. YASMIN [Suspect]
     Indication: DYSMENORRHOEA
     Route: 048
     Dates: start: 20070701, end: 20081024

REACTIONS (14)
  - ASTHENIA [None]
  - BLOOD CHOLESTEROL INCREASED [None]
  - CARBOHYDRATE TOLERANCE DECREASED [None]
  - FLUID RETENTION [None]
  - FOOD INTOLERANCE [None]
  - HEADACHE [None]
  - INSOMNIA [None]
  - IRRITABLE BOWEL SYNDROME [None]
  - LACTOSE INTOLERANCE [None]
  - MUSCLE SPASMS [None]
  - NAUSEA [None]
  - NO ADVERSE EVENT [None]
  - OESOPHAGEAL DISORDER [None]
  - WEIGHT DECREASED [None]
